FAERS Safety Report 19019077 (Version 6)
Quarter: 2021Q3

REPORT INFORMATION
  Report Type: Report from Study
  Country: IL (occurrence: IL)
  Receive Date: 20210316
  Receipt Date: 20210826
  Transmission Date: 20211014
  Serious: Yes (Life-Threatening, Hospitalization, Other)
  Sender: FDA-Public Use
  Company Number: IL-BRISTOL-MYERS SQUIBB COMPANY-BMS-2021-025247

PATIENT
  Age: 75 Year
  Sex: Male
  Weight: 83 kg

DRUGS (10)
  1. BMS?986321?01 [Suspect]
     Active Substance: INVESTIGATIONAL PRODUCT
     Indication: MALIGNANT MELANOMA
     Dosage: 0.498 MILLIGRAM
     Route: 042
     Dates: start: 20190814
  2. LIPITOR [Concomitant]
     Active Substance: ATORVASTATIN CALCIUM
     Indication: PRODUCT USED FOR UNKNOWN INDICATION
     Dosage: 20 MILLIGRAM
     Route: 048
     Dates: start: 20201001
  3. NEXIUM I.V. [Concomitant]
     Active Substance: ESOMEPRAZOLE SODIUM
     Indication: SENSATION OF FOREIGN BODY
     Dosage: 40 MILLIGRAM
     Route: 048
     Dates: start: 20201012
  4. IMODIUM [Concomitant]
     Active Substance: LOPERAMIDE HYDROCHLORIDE
     Indication: FAECES SOFT
     Dosage: 1 DOSAGE FORM
     Route: 048
     Dates: start: 20180801
  5. CARDILOC [Concomitant]
     Active Substance: BISOPROLOL FUMARATE
     Indication: SENSATION OF FOREIGN BODY
     Dosage: 1.25 MILLIGRAM
     Route: 048
     Dates: start: 20201001
  6. CIALIS [Concomitant]
     Active Substance: TADALAFIL
     Indication: PRODUCT USED FOR UNKNOWN INDICATION
     Dosage: 5 MILLIGRAM
     Route: 048
     Dates: start: 20180601
  7. DILATAM [Concomitant]
     Active Substance: DILTIAZEM HYDROCHLORIDE
     Indication: SENSATION OF FOREIGN BODY
     Dosage: 180 MILLIGRAM
     Route: 048
     Dates: start: 20201201
  8. DILATAM [Concomitant]
     Active Substance: DILTIAZEM HYDROCHLORIDE
     Indication: HYPERTENSION
  9. NIVOLUMAB [Suspect]
     Active Substance: NIVOLUMAB
     Indication: MALIGNANT MELANOMA
     Dosage: 360 MILLIGRAM
     Route: 042
     Dates: start: 20190814
  10. MICROPIRIN [Concomitant]
     Active Substance: ASPIRIN
     Indication: PRODUCT USED FOR UNKNOWN INDICATION
     Dosage: 100 MILLIGRAM
     Route: 048
     Dates: start: 20201001

REACTIONS (1)
  - Intestinal perforation [Recovered/Resolved]

NARRATIVE: CASE EVENT DATE: 20210311
